FAERS Safety Report 20919120 (Version 1)
Quarter: 2022Q2

REPORT INFORMATION
  Report Type: Spontaneous
  Country: JP (occurrence: JP)
  Receive Date: 20220606
  Receipt Date: 20220606
  Transmission Date: 20220721
  Serious: Yes (Other)
  Sender: FDA-Public Use
  Company Number: JP-PFIZER INC-202200757965

PATIENT
  Age: 63 Year
  Sex: Male

DRUGS (4)
  1. METHOTREXATE [Suspect]
     Active Substance: METHOTREXATE
     Indication: Prophylaxis
     Dosage: UNK
  2. TACROLIMUS [Concomitant]
     Active Substance: TACROLIMUS
     Indication: Prophylaxis
  3. FLUDARABINE [Concomitant]
     Active Substance: FLUDARABINE PHOSPHATE
     Indication: Therapeutic procedure
     Dosage: 125
  4. MELPHALAN [Concomitant]
     Active Substance: MELPHALAN
     Indication: Therapeutic procedure
     Dosage: 140

REACTIONS (6)
  - Venoocclusive disease [Unknown]
  - Blood bilirubin increased [Unknown]
  - Oedema [Unknown]
  - Renal function test abnormal [Unknown]
  - Weight increased [Unknown]
  - Off label use [Unknown]
